FAERS Safety Report 5709297-9 (Version None)
Quarter: 2008Q2

REPORT INFORMATION
  Report Type: 
  Country: None (occurrence: None)
  Receive Date: 20080418
  Receipt Date: 20080409
  Transmission Date: 20081010
  Serious: Yes (Hospitalization)
  Sender: FDA-Public Use
  Company Number: FR-ASTRAZENECA-2008CG00559

PATIENT
  Age: 32 Year
  Sex: Male

DRUGS (12)
  1. TENORMIN [Suspect]
     Route: 048
  2. TAMOXIFEN [Suspect]
     Route: 048
     Dates: start: 20080209, end: 20080303
  3. TRIATEC [Suspect]
     Route: 048
  4. AMLOR [Suspect]
     Route: 048
  5. NEORECORMON [Suspect]
     Route: 058
     Dates: start: 20030901, end: 20080101
  6. OFLOCET [Suspect]
     Route: 048
     Dates: start: 20080125, end: 20080127
  7. VANCOMYCIN [Suspect]
     Route: 065
     Dates: start: 20080127, end: 20080219
  8. TIENAM [Suspect]
     Route: 065
     Dates: start: 20080130, end: 20080219
  9. SPECIAFOLDINE [Concomitant]
  10. RENAGEL [Concomitant]
  11. KAYEXALATE [Concomitant]
  12. CALCIDIA [Concomitant]

REACTIONS (1)
  - APLASTIC ANAEMIA [None]
